FAERS Safety Report 5314215-1 (Version None)
Quarter: 2007Q2

REPORT INFORMATION
  Report Type: 
  Country: None (occurrence: None)
  Receive Date: 20070426
  Receipt Date: 20070412
  Transmission Date: 20071010
  Serious: Yes (Hospitalization)
  Sender: FDA-Public Use
  Company Number: DSM-2007-00081

PATIENT
  Age: 56 Year
  Sex: Male

DRUGS (2)
  1. ALTEIS (OLMESARTAN MEDOXOMIL) (OLMESARTAN MEDOXOMIL) (20  MILLIGRAM, T [Suspect]
     Indication: HYPERTENSION
     Dosage: 20 MG (20 MG, 1 IN 1D) ORAL
     Route: 048
     Dates: end: 20060720
  2. GLUCOPHAGE S (METFORMIN HYDROCHLORIDE) (METFORMIN HYDROCHLORIDE) [Suspect]
     Indication: DIABETES MELLITUS NON-INSULIN-DEPENDENT
     Dosage: ORAL
     Route: 048
     Dates: end: 20060720

REACTIONS (6)
  - ANOREXIA [None]
  - ASTHENIA [None]
  - DEHYDRATION [None]
  - GENERAL PHYSICAL HEALTH DETERIORATION [None]
  - HYPONATRAEMIA [None]
  - RENAL FAILURE ACUTE [None]
